FAERS Safety Report 5193231-7 (Version None)
Quarter: 2006Q4

REPORT INFORMATION
  Report Type: 
  Country: None (occurrence: None)
  Receive Date: 20061228
  Receipt Date: 20060721
  Transmission Date: 20070319
  Serious: No
  Sender: FDA-Public Use
  Company Number: US-GLAXOSMITHKLINE-A0613132A

PATIENT
  Age: 70 Year
  Sex: Male

DRUGS (6)
  1. AVODART [Suspect]
     Indication: BENIGN PROSTATIC HYPERPLASIA
     Dosage: .5MG PER DAY
     Route: 048
     Dates: start: 20060501
  2. PRAZOSIN HCL [Concomitant]
  3. ZOCOR [Concomitant]
  4. BENAZEPRIL HYDROCHLORIDE [Concomitant]
  5. AMBIEN [Concomitant]
  6. FLONASE [Concomitant]

REACTIONS (3)
  - FATIGUE [None]
  - PROSTATIC SPECIFIC ANTIGEN INCREASED [None]
  - SEXUAL DYSFUNCTION [None]
